FAERS Safety Report 9637455 (Version 1)
Quarter: 2013Q4

REPORT INFORMATION
  Report Type: Spontaneous
  Country: US (occurrence: None)
  Receive Date: 20131018
  Receipt Date: 20131018
  Transmission Date: 20140711
  Serious: Yes (Hospitalization)
  Sender: FDA-Public Use
  Company Number: 2013US009479

PATIENT
  Sex: Male

DRUGS (1)
  1. ALOXI [Suspect]
     Indication: PROPHYLAXIS OF NAUSEA AND VOMITING
     Dosage: SINGLE
     Route: 042
     Dates: start: 20131003, end: 20131003

REACTIONS (2)
  - Sepsis [None]
  - Bradycardia [None]
